FAERS Safety Report 17276568 (Version 1)
Quarter: 2020Q1

REPORT INFORMATION
  Report Type: Spontaneous
  Country: US (occurrence: US)
  Receive Date: 20191226
  Receipt Date: 20191226
  Transmission Date: 20200409
  Serious: Yes (Other)
  Sender: FDA-Public Use
  Company Number: None

PATIENT
  Age: 65 Year
  Sex: Female
  Weight: 90.72 kg

DRUGS (4)
  1. VITAMIN B12 [Concomitant]
     Active Substance: CYANOCOBALAMIN
  2. LISINOPRIL 20MG (FOR ZESTRIL) [Suspect]
     Active Substance: LISINOPRIL
     Indication: HYPERTENSION
     Dosage: ?          QUANTITY:1 DF DOSAGE FORM;?
     Route: 048
     Dates: start: 20190903, end: 20190918
  3. SIMVASTATIN. [Concomitant]
     Active Substance: SIMVASTATIN
  4. ASA 81 [Concomitant]
     Active Substance: ASPIRIN

REACTIONS (3)
  - Product substitution issue [None]
  - Tinnitus [None]
  - Blood pressure increased [None]
